FAERS Safety Report 20017280 (Version 1)
Quarter: 2021Q4

REPORT INFORMATION
  Report Type: Spontaneous
  Country: US (occurrence: US)
  Receive Date: 20211030
  Receipt Date: 20211030
  Transmission Date: 20220303
  Serious: No
  Sender: FDA-Public Use
  Company Number: US-drreddys-SPO/USA/21/0143057

PATIENT
  Age: 37 Year
  Sex: Female

DRUGS (2)
  1. ZENATANE [Suspect]
     Active Substance: ISOTRETINOIN
     Indication: Product used for unknown indication
     Dosage: RMA ISSUE DATE: 24 APRIL 2021 1:14:45 PM AND 26 APRIL 2021 12:49:20 PM.
     Dates: start: 20210424
  2. ZENATANE [Suspect]
     Active Substance: ISOTRETINOIN
     Dosage: RMA ISSUE DATE: 29 MAY 2021 10:39:47 AM,  28 JUNE 2021 6:52:16 AM, 27 JULY 2021 3:15:09 PM, 21 AUGUS
     Dates: start: 20210424

REACTIONS (2)
  - Drug ineffective [Unknown]
  - Product quality issue [Unknown]
